FAERS Safety Report 14917773 (Version 4)
Quarter: 2018Q2

REPORT INFORMATION
  Report Type: Report from Study
  Country: US (occurrence: US)
  Receive Date: 20180521
  Receipt Date: 20180605
  Transmission Date: 20180711
  Serious: Yes (Disabling)
  Sender: FDA-Public Use
  Company Number: US-ROCHE-2125560

PATIENT
  Age: 37 Year
  Sex: Female
  Weight: 74.3 kg

DRUGS (10)
  1. ATARAX [Concomitant]
     Active Substance: HYDROXYZINE HYDROCHLORIDE
     Dosage: HS
     Route: 065
  2. SINGULAIR [Concomitant]
     Active Substance: MONTELUKAST SODIUM
     Route: 065
  3. PLAQUENIL [Concomitant]
     Active Substance: HYDROXYCHLOROQUINE SULFATE
     Route: 065
  4. LOSARTAN. [Concomitant]
     Active Substance: LOSARTAN
  5. RANITIDINE. [Concomitant]
     Active Substance: RANITIDINE
     Route: 065
  6. XOLAIR [Suspect]
     Active Substance: OMALIZUMAB
     Route: 058
     Dates: start: 20180515, end: 20180515
  7. ALBUTEROL. [Concomitant]
     Active Substance: ALBUTEROL
     Dosage: PRN
     Route: 065
  8. ZYRTEC [Concomitant]
     Active Substance: CETIRIZINE HYDROCHLORIDE
     Route: 065
  9. LEXAPRO [Concomitant]
     Active Substance: ESCITALOPRAM OXALATE
  10. XOLAIR [Suspect]
     Active Substance: OMALIZUMAB
     Indication: CHRONIC SPONTANEOUS URTICARIA
     Route: 058
     Dates: start: 201802

REACTIONS (4)
  - Nausea [Recovered/Resolved]
  - Anaphylactic reaction [Recovered/Resolved]
  - Urticaria chronic [Unknown]
  - Product quality issue [Unknown]

NARRATIVE: CASE EVENT DATE: 20180515
